FAERS Safety Report 17910071 (Version 1)
Quarter: 2020Q2

REPORT INFORMATION
  Report Type: Spontaneous
  Country: KR (occurrence: KR)
  Receive Date: 20200617
  Receipt Date: 20200617
  Transmission Date: 20200714
  Serious: Yes (Other)
  Sender: FDA-Public Use
  Company Number: US-ASTRAZENECA-2020SE76801

PATIENT
  Age: 59 Year
  Sex: Male
  Weight: 111.4 kg

DRUGS (6)
  1. OLMESARTAN [Concomitant]
     Active Substance: OLMESARTAN
  2. PITAVASTATIN. [Concomitant]
     Active Substance: PITAVASTATIN CALCIUM
  3. FENOFIBRATE. [Concomitant]
     Active Substance: FENOFIBRATE
  4. DAPAGLIFLOZIN. [Suspect]
     Active Substance: DAPAGLIFLOZIN
     Indication: TYPE 2 DIABETES MELLITUS
     Route: 048
  5. AMLDOIPINE [Concomitant]
  6. ASPIRIN. [Concomitant]
     Active Substance: ASPIRIN

REACTIONS (7)
  - Hyperlipidaemia [Unknown]
  - Acute kidney injury [Unknown]
  - Hyperglycaemic hyperosmolar nonketotic syndrome [Unknown]
  - Left ventricular hypertrophy [Unknown]
  - Blood pressure increased [Unknown]
  - Hepatic steatosis [Unknown]
  - Dehydration [Unknown]
